FAERS Safety Report 10265049 (Version 1)
Quarter: 2014Q2

REPORT INFORMATION
  Report Type: Spontaneous
  Country: IT (occurrence: IT)
  Receive Date: 20140627
  Receipt Date: 20140627
  Transmission Date: 20141212
  Serious: Yes (Death, Hospitalization)
  Sender: FDA-Public Use
  Company Number: IT-BAYER-2014-095665

PATIENT
  Age: 65 Year
  Sex: Female

DRUGS (12)
  1. CARDIOASPIRIN [Suspect]
     Indication: ACUTE MYOCARDIAL INFARCTION
     Dosage: DAILY DOSE 100 MG
     Route: 048
     Dates: start: 20130610, end: 20140613
  2. COUMADIN [Interacting]
     Indication: ANTIPHOSPHOLIPID ANTIBODIES POSITIVE
     Dosage: UNK
     Route: 048
     Dates: start: 20140523, end: 20140613
  3. CLEXANE [Interacting]
     Indication: CYANOSIS
     Dosage: DAILY DOSE 2000 IU
     Route: 058
     Dates: start: 20140527, end: 20140613
  4. PANTOPRAZOLE [Concomitant]
     Dosage: UNK
     Route: 048
  5. LEVOTHYROXINE SODIUM [Concomitant]
     Dosage: UNK
     Route: 048
  6. BISOPROLOL [Concomitant]
     Dosage: UNK
     Route: 048
  7. ATORVASTATIN [Concomitant]
     Dosage: UNK
     Route: 048
  8. INSULIN [Concomitant]
  9. AMLODIPINE [Concomitant]
     Dosage: UNK
     Route: 048
  10. URSODEOXYCHOLIC ACID [Concomitant]
     Route: 048
  11. KEPPRA [Concomitant]
     Dosage: DAILY DOSE 1 G
     Route: 048
  12. LUVION [Concomitant]
     Dosage: UNK
     Route: 048

REACTIONS (3)
  - Subarachnoid haemorrhage [Fatal]
  - Drug interaction [Fatal]
  - Subdural haematoma [Fatal]
